FAERS Safety Report 24959622 (Version 3)
Quarter: 2025Q1

REPORT INFORMATION
  Report Type: Report from Study
  Country: KR (occurrence: KR)
  Receive Date: 20250212
  Receipt Date: 20250220
  Transmission Date: 20250409
  Serious: Yes (Life-Threatening, Hospitalization)
  Sender: PFIZER
  Company Number: KR-PFIZER INC-PV202500015775

PATIENT
  Age: 53 Year
  Sex: Male
  Weight: 64.6 kg

DRUGS (24)
  1. LORLATINIB [Suspect]
     Active Substance: LORLATINIB
     Indication: Non-small cell lung cancer stage IV
     Dosage: 100 MG, QD
     Route: 048
     Dates: start: 20200716
  2. FERRIC POLYSACCHARIDE COMPLEX [Concomitant]
     Active Substance: FERRIC POLYSACCHARIDE COMPLEX
     Indication: Iron deficiency
     Route: 042
     Dates: start: 20250203, end: 20250203
  3. DARBEPOETIN ALFA [Concomitant]
     Active Substance: DARBEPOETIN ALFA
     Indication: Anaemia
     Route: 042
     Dates: start: 20250203, end: 20250203
  4. DARBEPOETIN ALFA [Concomitant]
     Active Substance: DARBEPOETIN ALFA
     Indication: Iron deficiency
  5. ATORVASTATIN [Concomitant]
     Active Substance: ATORVASTATIN
     Indication: Blood cholesterol increased
     Dosage: 20 MG, QD
     Route: 048
     Dates: start: 20200729
  6. ATORVASTATIN CALCIUM\EZETIMIBE [Concomitant]
     Active Substance: ATORVASTATIN CALCIUM\EZETIMIBE
     Indication: Hypertriglyceridaemia
     Dosage: 1 DF (10/20 MG), QD
     Route: 048
     Dates: start: 20210705
  7. ATORVASTATIN CALCIUM\EZETIMIBE [Concomitant]
     Active Substance: ATORVASTATIN CALCIUM\EZETIMIBE
  8. FENOFIBRATE [Concomitant]
     Active Substance: FENOFIBRATE
     Indication: Hypertriglyceridaemia
     Dosage: 160  MG, QD
     Route: 048
     Dates: start: 20211007
  9. BOLGRE [FERRIC ACETYL TRANSFERRIN] [Concomitant]
     Indication: Iron deficiency
     Dosage: 1 DF(200/40MG), QD
     Route: 048
     Dates: start: 20240610
  10. TORSEMIDE [Concomitant]
     Active Substance: TORSEMIDE
     Indication: Hypertension
     Dosage: 5 MG, QD
     Route: 048
     Dates: start: 20241204
  11. MEGACE F [Concomitant]
     Indication: Prophylaxis
     Dosage: 1 DF, QD
     Route: 048
     Dates: start: 20241204
  12. ZYPREXA ZYDIS [Concomitant]
     Active Substance: OLANZAPINE
     Indication: Prophylaxis
     Dosage: 1 DF, 1X/DAY
     Route: 048
     Dates: start: 20241204
  13. LOPERAMIDE HYDROCHLORIDE [Concomitant]
     Active Substance: LOPERAMIDE HYDROCHLORIDE
     Indication: Prophylaxis against diarrhoea
     Dosage: 2 MG, BID
     Route: 048
     Dates: start: 20250106
  14. LINAGLIPTIN\METFORMIN HYDROCHLORIDE [Concomitant]
     Active Substance: LINAGLIPTIN\METFORMIN HYDROCHLORIDE
     Indication: Hypertriglyceridaemia
     Dosage: 1 DF, BID
     Route: 048
     Dates: start: 20220127
  15. PREDNISOLONE [Concomitant]
     Active Substance: PREDNISOLONE
     Indication: Prophylaxis
     Dosage: 10 MG, TID
     Route: 048
     Dates: start: 20241216, end: 20241217
  16. PREDNISOLONE [Concomitant]
     Active Substance: PREDNISOLONE
     Dosage: 10 MG, BID
     Route: 048
     Dates: start: 20241218, end: 20241219
  17. PREDNISOLONE [Concomitant]
     Active Substance: PREDNISOLONE
     Dosage: 10 MG, QD
     Route: 048
     Dates: start: 20241220, end: 20241221
  18. PREDNISOLONE [Concomitant]
     Active Substance: PREDNISOLONE
     Dosage: 5 MG, QD
     Route: 048
     Dates: start: 20241222
  19. PANTOPRAZOLE SODIUM [Concomitant]
     Active Substance: PANTOPRAZOLE SODIUM
     Indication: Prophylaxis
     Dosage: 20 MG, QD
     Route: 048
     Dates: start: 20241216, end: 20241223
  20. GRANDPHEROL [Concomitant]
     Indication: Vitamin E
     Dosage: 400 IU, BID
     Route: 048
     Dates: start: 20241212
  21. CHOLINE ALFOSCERATE [Concomitant]
     Active Substance: CHOLINE ALFOSCERATE
     Indication: Cognitive disorder
     Dosage: 400 MG, 2X/DAY
     Route: 048
     Dates: start: 20241212
  22. KEPPABEAR [Concomitant]
     Indication: Seizure prophylaxis
     Dosage: 500 MG, BID
     Route: 048
     Dates: start: 20241212
  23. lndenol [Concomitant]
     Indication: Seizure prophylaxis
     Dosage: 0.5 DF, BID
     Route: 048
     Dates: start: 20241212
  24. SODIUM CHLORIDE [Concomitant]
     Active Substance: SODIUM CHLORIDE
     Dosage: 250 ML, 1X/DAY
     Route: 042
     Dates: start: 20250203

REACTIONS (1)
  - Pneumonia [Recovered/Resolved]

NARRATIVE: CASE EVENT DATE: 20250208
